FAERS Safety Report 10650791 (Version 1)
Quarter: 2014Q4

REPORT INFORMATION
  Report Type: Spontaneous
  Country: US (occurrence: US)
  Receive Date: 20141215
  Receipt Date: 20141215
  Transmission Date: 20150529
  Serious: Yes (Other)
  Sender: FDA-Public Use
  Company Number: PHHY2014US160132

PATIENT
  Age: 37 Year
  Sex: Male

DRUGS (2)
  1. RIFAMPICIN [Concomitant]
     Active Substance: RIFAMPIN
     Indication: PRODUCT USED FOR UNKNOWN INDICATION
     Route: 065
  2. VANCOMYCIN [Suspect]
     Active Substance: VANCOMYCIN
     Indication: STAPHYLOCOCCAL INFECTION
     Route: 065

REACTIONS (7)
  - Pancreatic cyst [Recovered/Resolved]
  - Abdominal abscess [Recovered/Resolved]
  - Pathogen resistance [Recovered/Resolved]
  - Staphylococcal bacteraemia [Recovered/Resolved]
  - Pancreatic haemorrhage [Recovered/Resolved]
  - Endocarditis staphylococcal [Recovered/Resolved]
  - Staphylococcal infection [Recovered/Resolved]
